FAERS Safety Report 8398987-8 (Version None)
Quarter: 2012Q2

REPORT INFORMATION
  Report Type: 
  Country: None (occurrence: None)
  Receive Date: 20120531
  Receipt Date: 20120518
  Transmission Date: 20120825
  Serious: Yes (Other)
  Sender: FDA-Public Use
  Company Number: CN-JNJFOC-20120516202

PATIENT

DRUGS (1)
  1. INFLIXIMAB, RECOMBINANT [Suspect]
     Indication: CROHN'S DISEASE
     Dosage: RECEIVED AT WK 0, 2, AND 6 FOR ACHIEVING REMISSION, AND THEN EVERY 8 WKS TO MAINTAIN REMISSION
     Route: 042

REACTIONS (15)
  - RESPIRATORY TRACT CONGESTION [None]
  - INFUSION RELATED REACTION [None]
  - GASTROENTERITIS [None]
  - OEDEMA PERIPHERAL [None]
  - TRANSAMINASES INCREASED [None]
  - RASH GENERALISED [None]
  - UPPER RESPIRATORY TRACT INFECTION [None]
  - LYMPHOMA [None]
  - RASH [None]
  - ACNE [None]
  - NASOPHARYNGITIS [None]
  - ARTHRALGIA [None]
  - PYREXIA [None]
  - BODY TINEA [None]
  - PNEUMONIA [None]
